FAERS Safety Report 11795303 (Version 3)
Quarter: 2016Q3

REPORT INFORMATION
  Report Type: Other
  Country: US (occurrence: US)
  Receive Date: 20151202
  Receipt Date: 20160719
  Transmission Date: 20161109
  Serious: Yes (Other)
  Sender: FDA-Public Use
  Company Number: US-ACTELION-A-US2015-128092

PATIENT
  Sex: Male

DRUGS (12)
  1. VENTAVIS [Suspect]
     Active Substance: ILOPROST
     Indication: EXPOSURE DURING PREGNANCY
     Route: 064
  2. BUPIVACAINE. [Concomitant]
     Active Substance: BUPIVACAINE
  3. MORPHINE [Concomitant]
     Active Substance: MORPHINE
  4. HEPARIN [Concomitant]
     Active Substance: HEPARIN SODIUM
  5. FENTANYL. [Concomitant]
     Active Substance: FENTANYL
  6. SILDENAFIL. [Concomitant]
     Active Substance: SILDENAFIL
  7. PHENYLEPHRINE [Concomitant]
     Active Substance: PHENYLEPHRINE\PHENYLEPHRINE HYDROCHLORIDE
  8. DOBUTAMINE [Concomitant]
     Active Substance: DOBUTAMINE\DOBUTAMINE HYDROCHLORIDE
  9. VASOPRESSIN. [Concomitant]
     Active Substance: VASOPRESSIN
  10. NOREPINEPHRINE [Concomitant]
     Active Substance: NOREPINEPHRINE\NOREPINEPHRINE BITARTRATE
  11. ENOXAPARIN [Concomitant]
     Active Substance: ENOXAPARIN
  12. OXYTOCIN. [Concomitant]
     Active Substance: OXYTOCIN

REACTIONS (3)
  - Exposure during pregnancy [Unknown]
  - Premature baby [Unknown]
  - Low birth weight baby [Unknown]
